FAERS Safety Report 10262131 (Version 3)
Quarter: 2015Q1

REPORT INFORMATION
  Report Type: Spontaneous
  Country: US (occurrence: US)
  Receive Date: 20140626
  Receipt Date: 20150219
  Transmission Date: 20150720
  Serious: Yes (Hospitalization, Other)
  Sender: FDA-Public Use
  Company Number: US-GLAXOSMITHKLINE-A1077859A

PATIENT
  Age: 72 Year
  Sex: Female
  Weight: 200 kg

DRUGS (20)
  1. VENTOLIN [Suspect]
     Active Substance: ALBUTEROL SULFATE
     Indication: ASTHMA
     Dosage: 2 PUFFS, EVERY 4 HOURS AS NEEDED
     Route: 055
  2. BUMETANIDE. [Concomitant]
     Active Substance: BUMETANIDE
  3. SINGULAIR [Concomitant]
     Active Substance: MONTELUKAST SODIUM
  4. LOSARTAN [Concomitant]
     Active Substance: LOSARTAN
  5. CINNAMON. [Concomitant]
     Active Substance: CINNAMON
  6. LYRICA [Concomitant]
     Active Substance: PREGABALIN
  7. SYMBICORT [Concomitant]
     Active Substance: BUDESONIDE\FORMOTEROL FUMARATE DIHYDRATE
  8. CARVEDILOL. [Concomitant]
     Active Substance: CARVEDILOL
  9. PANTOPRAZOLE [Concomitant]
     Active Substance: PANTOPRAZOLE SODIUM
  10. VITAMIN D3 [Concomitant]
     Active Substance: CHOLECALCIFEROL
  11. KLOR-CON [Concomitant]
     Active Substance: POTASSIUM CHLORIDE
  12. SERTRALINE [Concomitant]
     Active Substance: SERTRALINE HYDROCHLORIDE
  13. WELCHOL [Concomitant]
     Active Substance: COLESEVELAM HYDROCHLORIDE
  14. PLAVIX [Concomitant]
     Active Substance: CLOPIDOGREL BISULFATE
  15. OMEGA 3 FISH OIL [Concomitant]
     Active Substance: FISH OIL\OMEGA-3 FATTY ACIDS
  16. EPIPEN [Concomitant]
     Active Substance: EPINEPHRINE
  17. VENTOLIN [Suspect]
     Active Substance: ALBUTEROL SULFATE
     Indication: CHRONIC OBSTRUCTIVE PULMONARY DISEASE
  18. XANAX [Suspect]
     Active Substance: ALPRAZOLAM
     Indication: PRODUCT USED FOR UNKNOWN INDICATION
     Dosage: UNKNOWN
     Route: 065
  19. TRAMADOL [Concomitant]
     Active Substance: TRAMADOL
  20. POTASSIUM GLUCONATE [Concomitant]
     Active Substance: POTASSIUM GLUCONATE

REACTIONS (7)
  - Respiratory disorder [Unknown]
  - Staphylococcal infection [Recovered/Resolved]
  - Fall [Unknown]
  - Drug ineffective [Unknown]
  - Device misuse [Unknown]
  - Somnolence [Unknown]
  - Bronchitis [Recovered/Resolved]

NARRATIVE: CASE EVENT DATE: 201303
